FAERS Safety Report 24899840 (Version 2)
Quarter: 2025Q1

REPORT INFORMATION
  Report Type: Spontaneous
  Country: PL (occurrence: PL)
  Receive Date: 20250129
  Receipt Date: 20250204
  Transmission Date: 20250408
  Serious: Yes (Hospitalization, Other)
  Sender: SANOFI AVENTIS
  Company Number: None

PATIENT
  Age: 25 Year
  Sex: Male

DRUGS (4)
  1. INSULIN GLARGINE [Suspect]
     Active Substance: INSULIN GLARGINE
     Indication: Muscle hypertrophy
     Dosage: 40 IU, QD (1 UNIT TO COVER 10 G OF GLUCOSE)
  2. TRENBOLONE ENANTHATE [Suspect]
     Active Substance: TRENBOLONE ENANTHATE
     Indication: Muscle hypertrophy
     Dosage: 60 MG, QW
     Route: 048
  3. TRENBOLONE ENANTHATE [Suspect]
     Active Substance: TRENBOLONE ENANTHATE
     Dosage: 200 MG, TIW
     Route: 030
  4. TESTOSTERONE [Suspect]
     Active Substance: TESTOSTERONE
     Indication: Muscle hypertrophy
     Dosage: 750 MG, QW
     Route: 030

REACTIONS (10)
  - Focal segmental glomerulosclerosis [Recovered/Resolved]
  - Proteinuria [Recovered/Resolved]
  - Haematuria [Recovered/Resolved]
  - Drug abuse [Recovered/Resolved]
  - Intentional product misuse [Recovered/Resolved]
  - Nephrotic syndrome [Recovered/Resolved]
  - Left ventricular hypertrophy [Unknown]
  - Hypertension [Not Recovered/Not Resolved]
  - Hypoglycaemia [Recovered/Resolved]
  - Product use in unapproved indication [Recovered/Resolved]
